FAERS Safety Report 6747694-3 (Version None)
Quarter: 2010Q2

REPORT INFORMATION
  Report Type: 
  Country: None (occurrence: None)
  Receive Date: 20100528
  Receipt Date: 20100524
  Transmission Date: 20101027
  Serious: Yes (Death, Other)
  Sender: FDA-Public Use
  Company Number: PHHY2009TR08617

PATIENT
  Age: 5 Year
  Sex: Male

DRUGS (9)
  1. CYCLOSPORINE [Suspect]
     Indication: STEM CELL TRANSPLANT
  2. CYCLOSPORINE [Suspect]
     Indication: PROPHYLAXIS AGAINST GRAFT VERSUS HOST DISEASE
  3. FK 506 [Suspect]
  4. METHOTREXATE [Concomitant]
     Indication: PROPHYLAXIS AGAINST GRAFT VERSUS HOST DISEASE
  5. STEROIDS NOS [Concomitant]
     Indication: MICROANGIOPATHY
  6. STEROIDS NOS [Concomitant]
     Indication: ACUTE GRAFT VERSUS HOST DISEASE
  7. PLASMAPHERESIS [Concomitant]
  8. DEFIBROTIDE [Concomitant]
  9. AMPHOTERICIN B [Concomitant]

REACTIONS (13)
  - ABNORMAL FAECES [None]
  - ACUTE GRAFT VERSUS HOST DISEASE [None]
  - ALANINE AMINOTRANSFERASE INCREASED [None]
  - ASPARTATE AMINOTRANSFERASE INCREASED [None]
  - BLOOD BILIRUBIN INCREASED [None]
  - CANDIDIASIS [None]
  - DEVICE RELATED INFECTION [None]
  - DIARRHOEA [None]
  - LIVER FUNCTION TEST ABNORMAL [None]
  - MICROANGIOPATHY [None]
  - MULTI-ORGAN FAILURE [None]
  - PULMONARY HAEMORRHAGE [None]
  - PYREXIA [None]
